FAERS Safety Report 9339741 (Version 1)
Quarter: 2013Q2

REPORT INFORMATION
  Report Type: Spontaneous
  Country: CN (occurrence: None)
  Receive Date: 20130605
  Receipt Date: 20130605
  Transmission Date: 20140414
  Serious: Yes (Other)
  Sender: FDA-Public Use
  Company Number: FK201301791

PATIENT
  Age: 40 Year
  Sex: Male

DRUGS (2)
  1. VANCOMYCIN [Suspect]
     Indication: ANTI-INFECTIVE THERAPY
     Dosage: INTRVENOUS (NOT OTHERWISE SPECIFIED)
     Route: 042
     Dates: start: 20120112, end: 20120112
  2. LIPOVENOES MCT [Suspect]
     Indication: NUTRITIONAL SUPPLEMENTATION
     Dosage: 250 MG, 1 IN 1 D, INTRAVENOUS (NOT OTHERWISE SPECIFIED)
     Route: 042
     Dates: start: 20120112, end: 20120117

REACTIONS (1)
  - Alanine aminotransferase increased [None]
